FAERS Safety Report 13448200 (Version 6)
Quarter: 2019Q4

REPORT INFORMATION
  Report Type: Report from Study
  Country: CA (occurrence: CA)
  Receive Date: 20170417
  Receipt Date: 20191129
  Transmission Date: 20200122
  Serious: Yes (Hospitalization, Other)
  Sender: FDA-Public Use
  Company Number: CA-BRISTOL-MYERS SQUIBB COMPANY-BMS-2017-030660

PATIENT
  Age: 71 Year
  Sex: Male

DRUGS (2)
  1. ABATACEPT [Suspect]
     Active Substance: ABATACEPT
     Indication: RHEUMATOID ARTHRITIS
     Dosage: 750 MILLIGRAM, Q4WK
     Route: 042
     Dates: start: 20140508
  2. ABATACEPT [Suspect]
     Active Substance: ABATACEPT
     Indication: PRODUCT USED FOR UNKNOWN INDICATION
     Dosage: 500 MILLIGRAM
     Route: 042
     Dates: start: 20181011

REACTIONS (13)
  - Fall [Unknown]
  - Nasopharyngitis [Unknown]
  - Fatigue [Unknown]
  - Suicidal ideation [Unknown]
  - Alcohol poisoning [Unknown]
  - Concussion [Recovering/Resolving]
  - Weight decreased [Unknown]
  - Productive cough [Unknown]
  - Heat stroke [Unknown]
  - Body temperature increased [Unknown]
  - Knee arthroplasty [Unknown]
  - Headache [Unknown]
  - Dyspnoea [Unknown]

NARRATIVE: CASE EVENT DATE: 20170306
